FAERS Safety Report 24891223 (Version 3)
Quarter: 2025Q4

REPORT INFORMATION
  Report Type: Spontaneous
  Country: US (occurrence: US)
  Receive Date: 20250127
  Receipt Date: 20251017
  Transmission Date: 20260118
  Serious: No
  Sender: SANOFI AVENTIS
  Company Number: US-SA-2025SA023172

PATIENT
  Age: 62 Year
  Sex: Female

DRUGS (1)
  1. KEVZARA [Suspect]
     Active Substance: SARILUMAB
     Indication: Polymyalgia rheumatica
     Dosage: 200 MG, QOW
     Route: 058
     Dates: start: 202408

REACTIONS (6)
  - Catheter site infection [Unknown]
  - Sinus disorder [Unknown]
  - Rhinorrhoea [Unknown]
  - Fatigue [Unknown]
  - Gait disturbance [Unknown]
  - Pain [Unknown]
